FAERS Safety Report 18443528 (Version 1)
Quarter: 2020Q4

REPORT INFORMATION
  Report Type: Spontaneous
  Country: US (occurrence: US)
  Receive Date: 20201029
  Receipt Date: 20201029
  Transmission Date: 20210114
  Serious: Yes (Hospitalization)
  Sender: FDA-Public Use
  Company Number: US-TEVA-2020-US-1842070

PATIENT
  Age: 74 Year
  Sex: Male

DRUGS (2)
  1. MYCOPHENOLATE MOFETIL. [Suspect]
     Active Substance: MYCOPHENOLATE MOFETIL
     Indication: SCLERODERMA
     Dosage: 2000 MILLIGRAM DAILY; FROM THE PAST 3 YEARS
     Route: 065
  2. MYCOPHENOLATE MOFETIL. [Suspect]
     Active Substance: MYCOPHENOLATE MOFETIL
     Dosage: 250 MILLIGRAM DAILY;
     Route: 065

REACTIONS (3)
  - Epstein-Barr virus infection [Recovered/Resolved]
  - Lymphoproliferative disorder [Recovered/Resolved]
  - Osteonecrosis of jaw [Recovered/Resolved]
